FAERS Safety Report 9080000 (Version 1)
Quarter: 2013Q1

REPORT INFORMATION
  Report Type: Report from Study
  Country: US (occurrence: US)
  Receive Date: 20130130
  Receipt Date: 20130130
  Transmission Date: 20140127
  Serious: No
  Sender: FDA-Public Use
  Company Number: US-ABBOTT-12P-163-0959956-00

PATIENT
  Age: 53 Year
  Sex: Male

DRUGS (3)
  1. HUMIRA 40 MG/0.8 ML PEN [Suspect]
     Indication: PSORIASIS
  2. CLARINEX [Concomitant]
     Indication: HYPERSENSITIVITY
     Dosage: 5MG DAILY
  3. ADVAIR [Concomitant]
     Indication: HYPERSENSITIVITY
     Dosage: DAILY

REACTIONS (1)
  - Blood creatinine increased [Not Recovered/Not Resolved]
